FAERS Safety Report 4628154-2 (Version None)
Quarter: 2005Q2

REPORT INFORMATION
  Report Type: 
  Country: None (occurrence: None)
  Receive Date: 20050404
  Receipt Date: 20050330
  Transmission Date: 20051028
  Serious: Yes (Hospitalization, Other)
  Sender: FDA-Public Use
  Company Number: 2005044066

PATIENT
  Age: 62 Year
  Sex: Male

DRUGS (2)
  1. LIPITOR [Suspect]
     Indication: HYPERLIPIDAEMIA
     Dosage: 20 MG (1 IN 1 D), ORAL
     Route: 048
     Dates: start: 20030308, end: 20050223
  2. BEZAFIBRATE (BEZAFIBRATE) [Suspect]
     Indication: BLOOD TRIGLYCERIDES INCREASED
     Dosage: 400 MG (1 IN 1 D), ORAL
     Route: 048
     Dates: start: 20030503, end: 20050223

REACTIONS (3)
  - BLOOD TRIGLYCERIDES INCREASED [None]
  - RENAL FAILURE ACUTE [None]
  - RHABDOMYOLYSIS [None]
